FAERS Safety Report 9520538 (Version 1)
Quarter: 2013Q3

REPORT INFORMATION
  Report Type: Spontaneous
  Country: US (occurrence: US)
  Receive Date: 20130913
  Receipt Date: 20130913
  Transmission Date: 20140515
  Serious: Yes (Hospitalization)
  Sender: FDA-Public Use
  Company Number: US-BIOGENIDEC-2013BI084995

PATIENT
  Age: 43 Year
  Sex: Female

DRUGS (1)
  1. TYSABRI [Suspect]
     Indication: MULTIPLE SCLEROSIS
     Route: 042
     Dates: start: 20120604

REACTIONS (5)
  - Dehydration [Recovered/Resolved]
  - Blood urine present [Recovered/Resolved]
  - Urinary tract infection [Recovered/Resolved]
  - Feeling abnormal [Recovered/Resolved]
  - Mobility decreased [Recovered/Resolved]
